FAERS Safety Report 25605827 (Version 1)
Quarter: 2025Q3

REPORT INFORMATION
  Report Type: Spontaneous
  Country: US (occurrence: US)
  Receive Date: 20250725
  Receipt Date: 20250725
  Transmission Date: 20251020
  Serious: Yes (Life-Threatening, Hospitalization)
  Sender: MYLAN
  Company Number: US-MYLANLABS-2025M1061829

PATIENT
  Age: 35 Year
  Sex: Male

DRUGS (4)
  1. NALOXONE [Suspect]
     Active Substance: NALOXONE
     Indication: Catatonia
  2. NALOXONE [Suspect]
     Active Substance: NALOXONE
     Route: 065
  3. NALOXONE [Suspect]
     Active Substance: NALOXONE
     Route: 065
  4. NALOXONE [Suspect]
     Active Substance: NALOXONE

REACTIONS (2)
  - Therapy non-responder [Unknown]
  - Off label use [Unknown]
